FAERS Safety Report 4977371-0 (Version None)
Quarter: 2006Q2

REPORT INFORMATION
  Report Type: 
  Country: None (occurrence: None)
  Receive Date: 20060419
  Receipt Date: 20051005
  Transmission Date: 20061013
  Serious: Yes (Hospitalization, Other)
  Sender: FDA-Public Use
  Company Number: US-MERCK-0510USA03928

PATIENT
  Age: 68 Year
  Sex: Female
  Weight: 127 kg

DRUGS (17)
  1. METOLAZONE [Concomitant]
     Route: 065
  2. ACIPHEX [Concomitant]
     Route: 065
  3. BUMEX [Concomitant]
     Indication: FLUID OVERLOAD
     Route: 065
  4. BUMEX [Concomitant]
     Indication: HYPERTENSION
     Route: 065
  5. CARDIZEM [Concomitant]
     Indication: ARTERIAL OCCLUSIVE DISEASE
     Route: 065
     Dates: start: 19960706, end: 20030401
  6. ZYRTEC [Concomitant]
     Indication: HYPERSENSITIVITY
     Route: 065
  7. POTASSIUM (UNSPECIFIED) [Concomitant]
     Route: 065
  8. FUROSEMIDE [Concomitant]
     Indication: HYPERTENSION
     Route: 065
     Dates: start: 20040601
  9. FUROSEMIDE [Concomitant]
     Route: 065
     Dates: start: 20010101, end: 20040601
  10. FUROSEMIDE [Concomitant]
     Indication: FLUID OVERLOAD
     Route: 065
     Dates: start: 20040601
  11. FUROSEMIDE [Concomitant]
     Route: 065
     Dates: start: 20010101, end: 20040601
  12. NITROGLYCERIN [Concomitant]
     Route: 061
  13. VIOXX [Suspect]
     Indication: ARTHRITIS
     Route: 048
     Dates: start: 20010801, end: 20040101
  14. VIOXX [Suspect]
     Route: 048
     Dates: start: 20040601, end: 20040801
  15. SYNTHROID [Concomitant]
     Route: 065
  16. PREMARIN [Concomitant]
     Indication: HORMONE REPLACEMENT THERAPY
     Route: 065
     Dates: start: 19740101
  17. PREMARIN [Concomitant]
     Indication: HYSTERECTOMY
     Route: 065
     Dates: start: 19740101

REACTIONS (25)
  - ACUTE MYOCARDIAL INFARCTION [None]
  - ANGINA PECTORIS [None]
  - ANXIETY [None]
  - BACK PAIN [None]
  - BLOOD CHOLESTEROL INCREASED [None]
  - BLOOD TRIGLYCERIDES INCREASED [None]
  - CARDIAC FAILURE CONGESTIVE [None]
  - CEREBROVASCULAR ACCIDENT [None]
  - CHOLECYSTITIS INFECTIVE [None]
  - CHOLELITHIASIS [None]
  - CORONARY ARTERY DISEASE [None]
  - CORONARY ARTERY OCCLUSION [None]
  - DEPRESSION [None]
  - FISTULA [None]
  - FURUNCLE [None]
  - HYPERTENSION [None]
  - HYPOKALAEMIA [None]
  - NODULE ON EXTREMITY [None]
  - POSTOPERATIVE ILEUS [None]
  - RENAL FAILURE [None]
  - RESTRICTIVE PULMONARY DISEASE [None]
  - SKIN GRAFT FAILURE [None]
  - SKIN ULCER [None]
  - VIRAL DIARRHOEA [None]
  - WOUND DEHISCENCE [None]
